FAERS Safety Report 11943054 (Version 1)
Quarter: 2016Q1

REPORT INFORMATION
  Report Type: Spontaneous
  Country: US (occurrence: US)
  Receive Date: 20160125
  Receipt Date: 20160125
  Transmission Date: 20160526
  Serious: No
  Sender: FDA-Public Use
  Company Number: US-UNITED THERAPEUTICS-UNT-2015-009925

PATIENT
  Age: 67 Year
  Sex: Female
  Weight: 58.5 kg

DRUGS (3)
  1. LETAIRIS [Concomitant]
     Active Substance: AMBRISENTAN
     Indication: PRODUCT USED FOR UNKNOWN INDICATION
  2. REMODULIN [Suspect]
     Active Substance: TREPROSTINIL
     Indication: PULMONARY HYPERTENSION
     Dosage: 0.045 ?G/KG/MIN, CONTINUING
     Route: 058
     Dates: start: 20150227
  3. REMODULIN [Suspect]
     Active Substance: TREPROSTINIL
     Dosage: UNK
     Route: 058

REACTIONS (13)
  - Infusion site pain [Unknown]
  - Infusion site warmth [Recovered/Resolved]
  - Discomfort [Recovered/Resolved]
  - Infusion site oedema [Unknown]
  - Device issue [Recovered/Resolved]
  - Infusion site exfoliation [Recovered/Resolved]
  - Migraine [Unknown]
  - Dysentery [Unknown]
  - Vomiting [Unknown]
  - Therapy cessation [Recovered/Resolved]
  - Diarrhoea [Unknown]
  - Headache [Unknown]
  - Infusion site erythema [Unknown]

NARRATIVE: CASE EVENT DATE: 201508
